FAERS Safety Report 7559325-3 (Version None)
Quarter: 2011Q2

REPORT INFORMATION
  Report Type: 
  Country: None (occurrence: None)
  Receive Date: 20110617
  Receipt Date: 20110617
  Transmission Date: 20111010
  Serious: Yes (Life-Threatening)
  Sender: FDA-Public Use
  Company Number: None

PATIENT
  Age: 59 Year
  Sex: Male
  Weight: 109 kg

DRUGS (1)
  1. GADOBENATE [Suspect]
     Indication: NUCLEAR MAGNETIC RESONANCE IMAGING
     Dosage: 16 ML ONCE IV
     Route: 042
     Dates: start: 20110609, end: 20110609

REACTIONS (6)
  - ANAPHYLACTIC REACTION [None]
  - MALAISE [None]
  - RESPIRATORY DISTRESS [None]
  - CARDIO-RESPIRATORY ARREST [None]
  - SOMNOLENCE [None]
  - ACUTE MYOCARDIAL INFARCTION [None]
